FAERS Safety Report 10265548 (Version 1)
Quarter: 2014Q2

REPORT INFORMATION
  Report Type: Spontaneous
  Country: US (occurrence: None)
  Receive Date: 20140624
  Receipt Date: 20140624
  Transmission Date: 20141212
  Serious: Yes (Hospitalization)
  Sender: FDA-Public Use
  Company Number: SYM-2014-21665

PATIENT
  Age: 5 Year
  Sex: Male
  Weight: 23.6 kg

DRUGS (1)
  1. GRISEOFULVIN [Suspect]
     Indication: TINEA INFECTION
     Route: 048
     Dates: start: 20140509

REACTIONS (1)
  - Stevens-Johnson syndrome [None]
